FAERS Safety Report 24389971 (Version 3)
Quarter: 2025Q2

REPORT INFORMATION
  Report Type: Report from Study
  Country: JP (occurrence: JP)
  Receive Date: 20241003
  Receipt Date: 20250620
  Transmission Date: 20250717
  Serious: Yes (Death, Other)
  Sender: SHIONOGI
  Company Number: JP-shionogi-202400000468

PATIENT
  Age: 61 Year
  Sex: Female
  Weight: 39.4 kg

DRUGS (13)
  1. CEFIDEROCOL [Suspect]
     Active Substance: CEFIDEROCOL
     Indication: Bacterial infection
     Route: 041
     Dates: start: 20240314, end: 20240318
  2. CEFIDEROCOL [Suspect]
     Active Substance: CEFIDEROCOL
     Indication: Pyrexia
     Dosage: RESUMED
     Route: 041
     Dates: start: 20240410, end: 20240414
  3. CEFIDEROCOL [Suspect]
     Active Substance: CEFIDEROCOL
     Indication: Enterocolitis bacterial
  4. AMIKACIN SULFATE [Concomitant]
     Active Substance: AMIKACIN SULFATE
     Indication: Bacterial infection
     Route: 065
     Dates: start: 202403
  5. AMIKACIN SULFATE [Concomitant]
     Active Substance: AMIKACIN SULFATE
     Indication: Pyrexia
  6. TYGACIL [Concomitant]
     Active Substance: TIGECYCLINE
     Indication: Enterocolitis bacterial
     Route: 065
     Dates: start: 20240305, end: 20240314
  7. ZERBAXA [Concomitant]
     Active Substance: CEFTOLOZANE SULFATE\TAZOBACTAM SODIUM
     Indication: Enterocolitis bacterial
     Route: 065
     Dates: start: 20240304, end: 20240308
  8. GANCICLOVIR [Concomitant]
     Active Substance: GANCICLOVIR
     Indication: Product used for unknown indication
     Route: 065
     Dates: end: 20240322
  9. DEFITELIO [Concomitant]
     Active Substance: DEFIBROTIDE SODIUM
     Indication: Product used for unknown indication
     Route: 065
     Dates: start: 20240319, end: 20240406
  10. SOLU-MEDROL [Concomitant]
     Active Substance: METHYLPREDNISOLONE SODIUM SUCCINATE
     Indication: Product used for unknown indication
     Route: 065
     Dates: end: 20240415
  11. OMEPRAZOLE [Concomitant]
     Active Substance: OMEPRAZOLE
     Indication: Product used for unknown indication
     Route: 065
     Dates: end: 20240415
  12. MICAFUNGIN SODIUM [Concomitant]
     Active Substance: MICAFUNGIN SODIUM
     Indication: Product used for unknown indication
     Route: 065
     Dates: end: 20240415
  13. FILGRASTIM [Concomitant]
     Active Substance: FILGRASTIM
     Indication: Product used for unknown indication
     Route: 065
     Dates: end: 20240414

REACTIONS (5)
  - General physical health deterioration [Fatal]
  - Graft versus host disease [Fatal]
  - Venoocclusive liver disease [Fatal]
  - Acute kidney injury [Unknown]
  - Pancreatitis acute [Unknown]

NARRATIVE: CASE EVENT DATE: 20240301
